FAERS Safety Report 13409830 (Version 3)
Quarter: 2017Q2

REPORT INFORMATION
  Report Type: Spontaneous
  Country: US (occurrence: US)
  Receive Date: 20170406
  Receipt Date: 20170516
  Transmission Date: 20170830
  Serious: No
  Sender: FDA-Public Use
  Company Number: US-PFIZER INC-2017147255

PATIENT
  Age: 82 Year
  Sex: Female

DRUGS (3)
  1. BOSULIF [Suspect]
     Active Substance: BOSUTINIB MONOHYDRATE
     Dosage: 200 MG, 1X/DAY (200 MG, 1X/DAY (2 PILLS A DAY))
     Dates: start: 20170310
  2. BOSULIF [Suspect]
     Active Substance: BOSUTINIB MONOHYDRATE
     Indication: CHRONIC MYELOID LEUKAEMIA
     Dosage: 100 MG, UNK
  3. BOSULIF [Suspect]
     Active Substance: BOSUTINIB MONOHYDRATE
     Dosage: 200 MG, DAILY, (2 TABLETS DAILY)
     Dates: start: 20170405

REACTIONS (8)
  - Abdominal distension [Unknown]
  - Nausea [Recovered/Resolved]
  - Dyspnoea [Unknown]
  - Chills [Unknown]
  - Stress [Unknown]
  - Fatigue [Unknown]
  - Asthenia [Unknown]
  - Platelet count decreased [Recovering/Resolving]
